FAERS Safety Report 5363174-4 (Version None)
Quarter: 2007Q2

REPORT INFORMATION
  Report Type: 
  Country: None (occurrence: None)
  Receive Date: 20070620
  Receipt Date: 20070611
  Transmission Date: 20071010
  Serious: Yes (Other)
  Sender: FDA-Public Use
  Company Number: PHEH2007US08106

PATIENT
  Age: 62 Year
  Sex: Male
  Weight: 107.94 kg

DRUGS (7)
  1. ZOMETA [Suspect]
     Indication: MULTIPLE MYELOMA
     Dosage: 4 MG MONTHLY
     Route: 042
     Dates: start: 20040101, end: 20050101
  2. ZOMETA [Suspect]
     Dosage: 4 MG IV EVERY 3 MONTHS
     Route: 042
     Dates: start: 20050101, end: 20060829
  3. LITHOBID [Concomitant]
     Dosage: 300 MG 2 TABS TO 3 TABS BID
     Route: 048
  4. MULTI-VITAMINS [Concomitant]
     Dosage: UNK, QD
     Route: 048
  5. ATIVAN [Concomitant]
     Dosage: 1 MG, PRN
     Route: 048
  6. K-DUR 10 [Concomitant]
     Dosage: 20 MEQ, TID
     Route: 048
  7. DILANTIN [Concomitant]
     Dosage: 100 MG, TID
     Route: 048

REACTIONS (18)
  - BETA 2 MICROGLOBULIN INCREASED [None]
  - BLOOD PRESSURE INCREASED [None]
  - BONE DISORDER [None]
  - BURNS THIRD DEGREE [None]
  - DENTAL CARIES [None]
  - DISCOMFORT [None]
  - INFLAMMATION [None]
  - MUSCULOSKELETAL PAIN [None]
  - ORAL CAVITY FISTULA [None]
  - OSTEONECROSIS [None]
  - PAIN IN JAW [None]
  - PRIMARY SEQUESTRUM [None]
  - PURULENT DISCHARGE [None]
  - ROTATOR CUFF SYNDROME [None]
  - SKIN GRAFT [None]
  - TOOTH ABSCESS [None]
  - TOOTH EXTRACTION [None]
  - TOOTHACHE [None]
